FAERS Safety Report 8577900-4 (Version None)
Quarter: 2012Q3

REPORT INFORMATION
  Report Type: 
  Country: None (occurrence: None)
  Receive Date: 20120808
  Receipt Date: 20120731
  Transmission Date: 20120928
  Serious: No
  Sender: FDA-Public Use
  Company Number: US-BIOGENIDEC-2012BI016376

PATIENT
  Sex: Female

DRUGS (4)
  1. AVONEX [Suspect]
     Route: 030
  2. AVONEX [Suspect]
     Route: 030
     Dates: start: 20050427, end: 20070426
  3. AVONEX [Suspect]
     Indication: MULTIPLE SCLEROSIS
     Route: 030
  4. AVONEX [Suspect]
     Route: 030
     Dates: start: 20120315

REACTIONS (19)
  - DYSSTASIA [None]
  - FALL [None]
  - INTERVERTEBRAL DISC DEGENERATION [None]
  - DIZZINESS [None]
  - MOOD ALTERED [None]
  - CATARACT [None]
  - ARTHRALGIA [None]
  - PAIN [None]
  - GLOSSOPTOSIS [None]
  - MUSCULOSKELETAL PAIN [None]
  - OEDEMA PERIPHERAL [None]
  - BLOOD GLUCOSE INCREASED [None]
  - ASTHENIA [None]
  - TREMOR [None]
  - MOBILITY DECREASED [None]
  - SOMNOLENCE [None]
  - PYREXIA [None]
  - POLLAKIURIA [None]
  - SPEECH DISORDER [None]
